FAERS Safety Report 9685819 (Version 2)
Quarter: 2013Q4

REPORT INFORMATION
  Report Type: Spontaneous
  Country: US (occurrence: US)
  Receive Date: 20131113
  Receipt Date: 20131216
  Transmission Date: 20140711
  Serious: No
  Sender: FDA-Public Use
  Company Number: US-PFIZER INC-2013321347

PATIENT
  Age: 62 Year
  Sex: Female

DRUGS (9)
  1. XELJANZ [Suspect]
     Indication: RHEUMATOID ARTHRITIS
     Dosage: 5 MG, 2X/DAY
     Route: 048
     Dates: start: 20131028
  2. XELJANZ [Suspect]
     Dosage: 5 MG, 1X/DAY
  3. ASPIRIN [Concomitant]
     Dosage: UNK
  4. OMEPRAZOLE [Concomitant]
     Dosage: UNK
  5. VICODIN [Concomitant]
     Dosage: UNK
  6. LISINOPRIL [Concomitant]
     Dosage: UNK
  7. NITROSTAT [Concomitant]
     Dosage: UNK
  8. LEVOTHYROXINE [Concomitant]
     Dosage: UNK
  9. IMURAN [Concomitant]
     Indication: RHEUMATOID ARTHRITIS
     Dosage: UNK, 1X/DAY

REACTIONS (2)
  - Incorrect dose administered [Unknown]
  - Dizziness [Recovered/Resolved]
